FAERS Safety Report 17749217 (Version 1)
Quarter: 2020Q2

REPORT INFORMATION
  Report Type: Report from Study
  Country: CA (occurrence: CA)
  Receive Date: 20200505
  Receipt Date: 20200505
  Transmission Date: 20200714
  Serious: Yes (Other)
  Sender: FDA-Public Use
  Company Number: CA-BEH-2020116611

PATIENT
  Sex: Male
  Weight: 83.9 kg

DRUGS (2)
  1. HIZENTRA [Suspect]
     Active Substance: HUMAN IMMUNOGLOBULIN G
     Indication: SECONDARY IMMUNODEFICIENCY
     Dosage: 20 GRAM, QOW (BIMONTHLY)
     Route: 058
     Dates: start: 20200414, end: 202004
  2. HIZENTRA [Suspect]
     Active Substance: HUMAN IMMUNOGLOBULIN G
     Indication: LYMPHOMA
     Dosage: UNK
     Route: 058
     Dates: start: 20200416

REACTIONS (4)
  - Gait disturbance [Recovered/Resolved]
  - Feeling abnormal [Unknown]
  - Neuralgia [Recovered/Resolved]
  - Myalgia [Recovered/Resolved]

NARRATIVE: CASE EVENT DATE: 202004
